FAERS Safety Report 24594748 (Version 1)
Quarter: 2024Q4

REPORT INFORMATION
  Report Type: Spontaneous
  Country: US (occurrence: None)
  Receive Date: 20241108
  Receipt Date: 20241108
  Transmission Date: 20250114
  Serious: Yes (Other)
  Sender: Public
  Company Number: None

PATIENT
  Age: 51 Year
  Sex: Female
  Weight: 69.3 kg

DRUGS (1)
  1. RINVOQ [Suspect]
     Active Substance: UPADACITINIB
     Indication: Autoimmune disorder
     Dates: start: 20220601, end: 20240831

REACTIONS (4)
  - Deafness [None]
  - Tinnitus [None]
  - Influenza like illness [None]
  - Drug ineffective [None]

NARRATIVE: CASE EVENT DATE: 20240908
